FAERS Safety Report 9958355 (Version 3)
Quarter: 2014Q2

REPORT INFORMATION
  Report Type: Spontaneous
  Country: IT (occurrence: IT)
  Receive Date: 20140305
  Receipt Date: 20140421
  Transmission Date: 20141212
  Serious: Yes (Life-Threatening, Hospitalization)
  Sender: FDA-Public Use
  Company Number: IT-ASTRAZENECA-2014SE14625

PATIENT
  Age: 782 Week
  Sex: Female

DRUGS (4)
  1. SEROQUEL [Suspect]
     Indication: DEPRESSION
     Dosage: 25 MG IN THE MORNING + 50 MG TO THE EVENING.
     Route: 048
     Dates: start: 20131115
  2. SEROQUEL [Suspect]
     Indication: DEPRESSION
     Route: 048
     Dates: start: 20140131, end: 20140131
  3. FLUOXETINA DOC GENERICI [Suspect]
     Indication: DEPRESSION
     Route: 048
     Dates: start: 20131012
  4. FLUOXETINA DOC GENERICI [Suspect]
     Indication: DEPRESSION
     Route: 048
     Dates: start: 20140131, end: 20140131

REACTIONS (3)
  - Overdose [Unknown]
  - Drug abuse [Recovered/Resolved]
  - Sopor [Recovered/Resolved]
